FAERS Safety Report 4325616-2 (Version None)
Quarter: 2004Q1

REPORT INFORMATION
  Report Type: 
  Country: None (occurrence: None)
  Receive Date: 20040324
  Receipt Date: 20040309
  Transmission Date: 20041129
  Serious: Yes (Life-Threatening, Other)
  Sender: FDA-Public Use
  Company Number: US_030897331

PATIENT
  Age: 57 Year
  Sex: Female
  Weight: 75 kg

DRUGS (7)
  1. HUMULIN N [Suspect]
     Indication: DIABETES MELLITUS
     Dosage: 50 U/DAY
     Dates: start: 19980101, end: 20000301
  2. HUMULIN R [Suspect]
     Indication: DIABETES MELLITUS
     Dosage: 15 U/IN THE MORNING
     Dates: start: 19980101, end: 20000301
  3. NPH ILETIN I (BEEF-PORK) [Suspect]
     Indication: DIABETES MELLITUS
     Dates: end: 19980101
  4. ILETIN [Suspect]
     Indication: DIABETES MELLITUS
     Dates: end: 19980101
  5. REGULAR INSULIN [Suspect]
     Indication: DIABETES MELLITUS
     Dates: start: 20000301
  6. NPH ILETIN II (PORK) [Suspect]
     Indication: DIABETES MELLITUS
     Dosage: 55 U/DAY
     Dates: start: 20000301
  7. HUMULIN 70/30 [Suspect]
     Indication: DIABETES MELLITUS

REACTIONS (13)
  - ARTERIAL DISORDER [None]
  - BLOOD GLUCOSE DECREASED [None]
  - BLOOD GLUCOSE INCREASED [None]
  - BREAST CANCER [None]
  - CARDIO-RESPIRATORY ARREST [None]
  - CEREBROVASCULAR ACCIDENT [None]
  - CORONARY ARTERY DISEASE [None]
  - HYPOAESTHESIA [None]
  - HYPOGLYCAEMIA UNAWARENESS [None]
  - LOSS OF CONSCIOUSNESS [None]
  - MYOCARDIAL INFARCTION [None]
  - PROCEDURAL COMPLICATION [None]
  - VOMITING [None]
